FAERS Safety Report 4689155-1 (Version None)
Quarter: 2005Q2

REPORT INFORMATION
  Report Type: 
  Country: None (occurrence: None)
  Receive Date: 20050608
  Receipt Date: 20050228
  Transmission Date: 20051028
  Serious: No
  Sender: FDA-Public Use
  Company Number: 2005-BP-03118BP

PATIENT
  Age: 63 Year
  Sex: Female

DRUGS (18)
  1. SPIRIVA [Suspect]
     Indication: CHRONIC OBSTRUCTIVE PULMONARY DISEASE
     Dosage: 18 MCG (18 MCG, 1 IN 1 D), IH
     Route: 055
     Dates: start: 20041102
  2. DARVOCET [Concomitant]
  3. FUROSEMIDE [Concomitant]
  4. SPIRONOLACTONE [Concomitant]
  5. POTASSIUM CHLORIDE [Concomitant]
  6. ACETYLSALICYLIC ACID SRT [Concomitant]
  7. ACIPHEX [Concomitant]
  8. LIPITOR [Concomitant]
  9. ATACAND [Concomitant]
  10. LEXAPRO [Concomitant]
  11. LORAZEPAM [Concomitant]
  12. NASONEX [Concomitant]
  13. ALLEGRA [Concomitant]
  14. ADVAIR DISKUS 100/50 [Concomitant]
  15. ALBUTEROL [Concomitant]
  16. IRON (IRON) [Concomitant]
  17. VITAMINS (VITAMINS) [Concomitant]
  18. MAGNESIUM (MAGNESIUM) [Concomitant]

REACTIONS (3)
  - EYE PAIN [None]
  - PAIN IN EXTREMITY [None]
  - VITREOUS FLOATERS [None]
